FAERS Safety Report 4759101-0 (Version None)
Quarter: 2005Q3

REPORT INFORMATION
  Report Type: 
  Country: None (occurrence: None)
  Receive Date: 20050826
  Receipt Date: 20050815
  Transmission Date: 20060218
  Serious: Yes (Other)
  Sender: FDA-Public Use
  Company Number: 200513290BCC

PATIENT
  Age: 83 Year
  Sex: Male
  Weight: 95.2554 kg

DRUGS (3)
  1. ALEVE (CAPLET) [Suspect]
     Indication: ARTHRALGIA
     Dosage: 220 MG, ONCE, ORAL
     Route: 048
     Dates: start: 20050815
  2. COUMADIN [Concomitant]
  3. LANOXIN [Concomitant]

REACTIONS (1)
  - BLOOD PRESSURE INCREASED [None]
